FAERS Safety Report 6442735-5 (Version None)
Quarter: 2009Q4

REPORT INFORMATION
  Report Type: 
  Country: None (occurrence: None)
  Receive Date: 20091117
  Receipt Date: 20091112
  Transmission Date: 20100525
  Serious: Yes (Life-Threatening, Hospitalization, Disabling)
  Sender: FDA-Public Use
  Company Number: US-ASTRAZENECA-2009SE26442

PATIENT
  Age: 71 Year
  Sex: Female
  Weight: 67.1 kg

DRUGS (4)
  1. PRILOSEC [Suspect]
     Indication: GASTROOESOPHAGEAL REFLUX DISEASE
     Route: 048
     Dates: start: 20040101
  2. IMDUR [Concomitant]
     Route: 048
  3. IMDUR [Concomitant]
     Route: 048
  4. BLOOD PRESSURE MEDICATION [Concomitant]

REACTIONS (6)
  - BLINDNESS [None]
  - CATARACT [None]
  - DRUG DOSE OMISSION [None]
  - DYSPEPSIA [None]
  - HOSPITALISATION [None]
  - OCULAR NEOPLASM [None]
